FAERS Safety Report 16136408 (Version 5)
Quarter: 2022Q3

REPORT INFORMATION
  Report Type: Report from Study
  Country: US (occurrence: US)
  Receive Date: 20190329
  Receipt Date: 20220919
  Transmission Date: 20221027
  Serious: Yes (Hospitalization, Other)
  Sender: FDA-Public Use
  Company Number: US-SHIRE-US201910014

PATIENT
  Sex: Female
  Weight: 93 kg

DRUGS (17)
  1. LANADELUMAB [Suspect]
     Active Substance: LANADELUMAB
     Indication: Immune system disorder
     Dosage: 300 MILLIGRAM, Q2WEEKS
     Route: 058
     Dates: start: 20180312, end: 20190221
  2. FIRAZYR [Suspect]
     Active Substance: ICATIBANT ACETATE
     Indication: Immune system disorder
     Dosage: 30 MILLIGRAM
     Route: 058
     Dates: start: 20130214
  3. FIRAZYR [Suspect]
     Active Substance: ICATIBANT ACETATE
     Indication: Immune system disorder
     Dosage: 30 MILLIGRAM
     Route: 058
     Dates: start: 20130214
  4. CALTRATE [Concomitant]
     Active Substance: CALCIUM CARBONATE
  5. MAXALT [Concomitant]
     Active Substance: RIZATRIPTAN BENZOATE
  6. ZOFRAN [Concomitant]
     Active Substance: ONDANSETRON HYDROCHLORIDE
  7. TIZANIDINE [Concomitant]
     Active Substance: TIZANIDINE
  8. HYDROXYZINE [Concomitant]
     Active Substance: HYDROXYZINE HYDROCHLORIDE
  9. VITAMINS [Concomitant]
     Active Substance: VITAMINS
  10. TOPIRAMATE [Concomitant]
     Active Substance: TOPIRAMATE
  11. KALBITOR [Concomitant]
     Active Substance: ECALLANTIDE
  12. AJOVY [Concomitant]
     Active Substance: FREMANEZUMAB-VFRM
  13. MINIVELLE [Concomitant]
     Active Substance: ESTRADIOL
  14. SPIRIVA [Concomitant]
     Active Substance: TIOTROPIUM BROMIDE MONOHYDRATE
     Indication: Asthma
  15. TRAZODONE HCL [Concomitant]
     Active Substance: TRAZODONE HYDROCHLORIDE
  16. NURTEC ODT [Concomitant]
     Active Substance: RIMEGEPANT SULFATE
  17. HYDROXYZINE HYDROCHLORIDE [Concomitant]
     Active Substance: HYDROXYZINE HYDROCHLORIDE

REACTIONS (6)
  - Sinusitis [Unknown]
  - Urinary tract infection [Unknown]
  - Kidney infection [Unknown]
  - Migraine [Unknown]
  - COVID-19 [Unknown]
  - Hereditary angioedema [Unknown]
